FAERS Safety Report 6841697-6 (Version None)
Quarter: 2010Q3

REPORT INFORMATION
  Report Type: 
  Country: None (occurrence: None)
  Receive Date: 20100714
  Receipt Date: 20070712
  Transmission Date: 20110219
  Serious: No
  Sender: FDA-Public Use
  Company Number: US-PFIZER INC-2007059501

PATIENT
  Sex: Male
  Weight: 117.3 kg

DRUGS (7)
  1. CHANTIX [Suspect]
     Indication: SMOKING CESSATION THERAPY
     Dates: start: 20070702
  2. BYETTA [Suspect]
     Indication: DIABETES MELLITUS
     Dates: start: 20070611
  3. PAXIL [Concomitant]
  4. GLYBURIDE [Concomitant]
  5. VALIUM [Concomitant]
  6. BENICAR [Concomitant]
  7. LORTAB [Concomitant]

REACTIONS (4)
  - CONSTIPATION [None]
  - FLATULENCE [None]
  - IRRITABILITY [None]
  - NAUSEA [None]
